FAERS Safety Report 16662562 (Version 1)
Quarter: 2019Q3

REPORT INFORMATION
  Report Type: Spontaneous
  Country: US (occurrence: US)
  Receive Date: 20190802
  Receipt Date: 20190802
  Transmission Date: 20191004
  Serious: Yes (Death)
  Sender: FDA-Public Use
  Company Number: None

PATIENT
  Age: 53 Year
  Sex: Female

DRUGS (3)
  1. AFINITOR [Suspect]
     Active Substance: EVEROLIMUS
     Indication: LUNG CARCINOMA CELL TYPE UNSPECIFIED STAGE 0
     Route: 048
     Dates: start: 20190314, end: 20190705
  2. DEXAMETHASONE. [Concomitant]
     Active Substance: DEXAMETHASONE
  3. LEVOTHYROXINE. [Concomitant]
     Active Substance: LEVOTHYROXINE

REACTIONS (1)
  - Death [None]

NARRATIVE: CASE EVENT DATE: 20190705
